FAERS Safety Report 7933532-X (Version None)
Quarter: 2011Q4

REPORT INFORMATION
  Report Type: 
  Country: None (occurrence: None)
  Receive Date: 20111122
  Receipt Date: 20111116
  Transmission Date: 20120403
  Serious: Yes (Other)
  Sender: FDA-Public Use
  Company Number: US-SANOFI-AVENTIS-2011SA075440

PATIENT
  Age: 45 Year
  Sex: Female

DRUGS (4)
  1. SOLOSTAR [Suspect]
     Dates: start: 20110901
  2. LANTUS [Suspect]
     Route: 058
  3. APIDRA [Suspect]
     Dosage: BASED CARBOHYDRATE INTAKE
     Route: 058
     Dates: start: 20110901
  4. SOLOSTAR [Suspect]

REACTIONS (2)
  - ABORTION SPONTANEOUS [None]
  - MATERNAL EXPOSURE DURING PREGNANCY [None]
